FAERS Safety Report 9891079 (Version 1)
Quarter: 2014Q1

REPORT INFORMATION
  Report Type: Spontaneous
  Country: US (occurrence: None)
  Receive Date: 20140211
  Receipt Date: 20140211
  Transmission Date: 20141002
  Serious: Yes (Hospitalization)
  Sender: FDA-Public Use
  Company Number: None

PATIENT
  Age: 71 Year
  Sex: Male
  Weight: 57.38 kg

DRUGS (2)
  1. CARBOPLATIN [Suspect]
     Dates: start: 20140130
  2. DOCETAXEL (TAXOTERE) [Suspect]
     Dates: start: 20140130

REACTIONS (5)
  - Failure to thrive [None]
  - Neutropenia [None]
  - Asthenia [None]
  - Fatigue [None]
  - White blood cell count decreased [None]
